FAERS Safety Report 4706285-6 (Version None)
Quarter: 2005Q3

REPORT INFORMATION
  Report Type: 
  Country: None (occurrence: None)
  Receive Date: 20050705
  Receipt Date: 20050701
  Transmission Date: 20060218
  Serious: Yes (Death)
  Sender: FDA-Public Use
  Company Number: FR-RB-1843-2005

PATIENT
  Age: 31 Year
  Sex: Male

DRUGS (7)
  1. DIDANOSINE [Suspect]
     Indication: HIV TEST POSITIVE
     Route: 048
     Dates: start: 20000607, end: 20001003
  2. INDINAVIR SULFATE [Suspect]
     Indication: DRUG USE FOR UNKNOWN INDICATION
     Route: 065
     Dates: start: 20000803, end: 20001003
  3. RITONAVIR [Suspect]
     Indication: HIV TEST POSITIVE
     Route: 065
     Dates: start: 20000803, end: 20001003
  4. ABACAVIR SULFATE [Suspect]
     Indication: HIV TEST POSITIVE
     Route: 065
     Dates: start: 20000607, end: 20001003
  5. BUPRENORPHINE HCL [Suspect]
     Indication: DRUG DEPENDENCE
     Route: 048
     Dates: end: 20001003
  6. FLUCONAZOLE [Suspect]
     Indication: DRUG USE FOR UNKNOWN INDICATION
     Route: 048
     Dates: end: 20001003
  7. OMEPRAZOLE [Concomitant]
     Indication: DRUG USE FOR UNKNOWN INDICATION
     Route: 065
     Dates: start: 20001002, end: 20001003

REACTIONS (7)
  - CARDIAC ARREST [None]
  - CHEST PAIN [None]
  - DEATH [None]
  - HYPERTRIGLYCERIDAEMIA [None]
  - LOSS OF CONSCIOUSNESS [None]
  - OESOPHAGITIS [None]
  - SMOKER [None]
